FAERS Safety Report 16142254 (Version 2)
Quarter: 2019Q2

REPORT INFORMATION
  Report Type: Spontaneous
  Country: US (occurrence: US)
  Receive Date: 20190401
  Receipt Date: 20190424
  Transmission Date: 20190711
  Serious: No
  Sender: FDA-Public Use
  Company Number: US-SA-2019SA086995

PATIENT
  Age: 43 Year
  Sex: Female

DRUGS (1)
  1. LANTUS SOLOSTAR [Suspect]
     Active Substance: INSULIN GLARGINE
     Indication: TYPE 1 DIABETES MELLITUS
     Dosage: 8.5 U, QD
     Route: 065
     Dates: start: 201705

REACTIONS (3)
  - Wrong technique in device usage process [Unknown]
  - Product storage error [Unknown]
  - Drug ineffective [Unknown]
